FAERS Safety Report 14979610 (Version 2)
Quarter: 2018Q3

REPORT INFORMATION
  Report Type: Spontaneous
  Country: JP (occurrence: JP)
  Receive Date: 20180606
  Receipt Date: 20180705
  Transmission Date: 20181010
  Serious: Yes (Hospitalization)
  Sender: FDA-Public Use
  Company Number: JP-EISAI MEDICAL RESEARCH-EC-2018-039471

PATIENT
  Age: 78 Year
  Sex: Female
  Weight: 58 kg

DRUGS (5)
  1. LENVIMA [Suspect]
     Active Substance: LENVATINIB
     Indication: HEPATOCELLULAR CARCINOMA
     Route: 048
     Dates: start: 20180424, end: 20180511
  2. LENVIMA [Suspect]
     Active Substance: LENVATINIB
     Route: 048
     Dates: start: 20180517, end: 20180523
  3. LENVIMA [Suspect]
     Active Substance: LENVATINIB
     Route: 048
     Dates: start: 20180524
  4. AMLODIPINE [Concomitant]
     Active Substance: AMLODIPINE BESYLATE
     Indication: HYPERTENSION
     Route: 048
  5. THYRADIN [Concomitant]
     Active Substance: LEVOTHYROXINE
     Indication: HYPOTHYROIDISM
     Dosage: UNKNOWN
     Route: 065
     Dates: start: 201804

REACTIONS (8)
  - Heart rate decreased [Recovered/Resolved]
  - Abdominal pain [Recovered/Resolved]
  - Hypertension [Recovering/Resolving]
  - Pyrexia [Recovered/Resolved]
  - Ammonia increased [Recovering/Resolving]
  - Hypothyroidism [Recovering/Resolving]
  - Thrombocytopenia [Recovering/Resolving]
  - Clostridium difficile colitis [Recovering/Resolving]

NARRATIVE: CASE EVENT DATE: 201804
